FAERS Safety Report 20269416 (Version 1)
Quarter: 2022Q1

REPORT INFORMATION
  Report Type: Report from Study
  Country: CO (occurrence: CO)
  Receive Date: 20220101
  Receipt Date: 20220101
  Transmission Date: 20220423
  Serious: Yes (Other)
  Sender: FDA-Public Use
  Company Number: CO-AMGEN-COLSL2021178302

PATIENT
  Age: 93 Year
  Sex: Male

DRUGS (2)
  1. REPATHA [Suspect]
     Active Substance: EVOLOCUMAB
     Indication: Low density lipoprotein increased
     Dosage: 140 MILLIGRAM, Q2WK
     Route: 058
     Dates: start: 20210714, end: 20211007
  2. REPATHA [Suspect]
     Active Substance: EVOLOCUMAB
     Dosage: 140 MILLIGRAM, Q2WK
     Route: 058
     Dates: start: 202111

REACTIONS (3)
  - Vitamin B12 increased [Not Recovered/Not Resolved]
  - Hyperglycaemia [Not Recovered/Not Resolved]
  - Inhibitory drug interaction [Not Recovered/Not Resolved]
